FAERS Safety Report 19152979 (Version 1)
Quarter: 2021Q2

REPORT INFORMATION
  Report Type: Spontaneous
  Country: US (occurrence: US)
  Receive Date: 20210417
  Receipt Date: 20210417
  Transmission Date: 20210717
  Serious: Yes (Other)
  Sender: FDA-Public Use
  Company Number: None

PATIENT
  Age: 33 Year
  Sex: Male
  Weight: 86.4 kg

DRUGS (4)
  1. FLUVOXAMINE MALEATE 150MG [Concomitant]
  2. MEN^S MULTI (OLLY) [Concomitant]
  3. ALLI [Suspect]
     Active Substance: ORLISTAT
     Indication: OBESITY
     Dosage: ?          QUANTITY:1 TABLET(S);?
     Route: 048
  4. AMLODIPINE BESYLATE 5MG [Concomitant]
     Active Substance: AMLODIPINE BESYLATE

REACTIONS (3)
  - Alanine aminotransferase increased [None]
  - Aspartate aminotransferase increased [None]
  - Liver injury [None]

NARRATIVE: CASE EVENT DATE: 20191212
